FAERS Safety Report 25035116 (Version 2)
Quarter: 2025Q1

REPORT INFORMATION
  Report Type: Report from Study
  Country: US (occurrence: US)
  Receive Date: 20250304
  Receipt Date: 20250319
  Transmission Date: 20250409
  Serious: Yes (Other)
  Sender: BAUSCH AND LOMB
  Company Number: US-BAUSCHBL-2024BNL032861

PATIENT
  Age: 75 Year
  Sex: Female

DRUGS (5)
  1. MIEBO [Suspect]
     Active Substance: PERFLUOROHEXYLOCTANE
     Indication: Dry eye
     Dosage: INSTILL 1 DROP INTO THE AFFECTED EYE(S) 4 TIMES A DAY FOR DRY EYE
     Route: 047
     Dates: start: 20240705
  2. MIEBO [Suspect]
     Active Substance: PERFLUOROHEXYLOCTANE
     Dosage: INSTILL 1 DROP INTO THE AFFECTED EYE(S) 4 TIMES A DAY FOR DRY EYE
     Route: 047
     Dates: start: 20240706, end: 20250217
  3. PROLENSA [Suspect]
     Active Substance: BROMFENAC SODIUM
     Indication: Product used for unknown indication
     Route: 047
  4. COMBIGAN [Concomitant]
     Active Substance: BRIMONIDINE TARTRATE\TIMOLOL MALEATE
     Indication: Product used for unknown indication
  5. PRED FORTE [Concomitant]
     Active Substance: PREDNISOLONE ACETATE
     Indication: Product used for unknown indication

REACTIONS (4)
  - Ophthalmic herpes zoster [Unknown]
  - Product residue present [Unknown]
  - Product use issue [Unknown]
  - Product knowledge deficit [Unknown]

NARRATIVE: CASE EVENT DATE: 20240101
